FAERS Safety Report 7459300-3 (Version None)
Quarter: 2011Q2

REPORT INFORMATION
  Report Type: 
  Country: None (occurrence: None)
  Receive Date: 20110505
  Receipt Date: 20110503
  Transmission Date: 20111010
  Serious: No
  Sender: FDA-Public Use
  Company Number: US-PFIZER INC-2011095400

PATIENT
  Sex: Male
  Weight: 77.098 kg

DRUGS (4)
  1. GABAPENTIN [Concomitant]
     Dosage: 300 MG, DAILY
  2. OMEPRAZOLE [Concomitant]
     Dosage: UNK
  3. SUTENT [Suspect]
     Indication: RENAL DISORDER
     Dosage: 50 MG, DAILY
     Route: 048
     Dates: start: 20091001
  4. ACETYLSALICYLIC ACID [Concomitant]
     Indication: MYOCARDIAL INFARCTION
     Dosage: 81 MG, 1X/DAY

REACTIONS (1)
  - DIARRHOEA [None]
